FAERS Safety Report 6203258-1 (Version None)
Quarter: 2009Q2

REPORT INFORMATION
  Report Type: 
  Country: None (occurrence: None)
  Receive Date: 20090521
  Receipt Date: 20090512
  Transmission Date: 20091009
  Serious: Yes (Other)
  Sender: FDA-Public Use
  Company Number: 000698

PATIENT
  Sex: Female

DRUGS (6)
  1. OMEPRAZOLE [Suspect]
     Indication: HIATUS HERNIA
     Dosage: (20 MG, 20MG DAILY ORAL)
     Route: 048
     Dates: start: 20070405
  2. SERETIDE /01420901/ (SERETIDE) (NOT SPECIFIED) [Suspect]
     Indication: ASTHMA
     Dosage: (1 DE QID,  PUFFS TWICE DAILY RESPIRATORY (INHALATION))
     Route: 055
     Dates: start: 20070215
  3. VENTOLIN [Suspect]
     Indication: ASTHMA
     Dosage: (RESPIRATORY (INHALATION))
     Route: 055
     Dates: start: 20070201
  4. BENDROFLUME THIAZIDE (BENDROFLUMETHIAZIDE) [Suspect]
     Indication: BLOOD PRESSURE
     Dosage: (2.5 MG, 2.5MG DAILY ORAL)
     Route: 048
     Dates: start: 20050808
  5. ACETAMINOPHEN W/ CODEINE [Suspect]
  6. GAVISCON /00237601/ (GAVISCON) [Suspect]

REACTIONS (1)
  - BREAST CANCER [None]
